FAERS Safety Report 12619339 (Version 1)
Quarter: 2016Q3

REPORT INFORMATION
  Report Type: Spontaneous
  Country: GB (occurrence: GB)
  Receive Date: 20160803
  Receipt Date: 20160803
  Transmission Date: 20161109
  Serious: Yes (Other)
  Sender: FDA-Public Use
  Company Number: GB-MYLANLABS-2016M1030929

PATIENT

DRUGS (3)
  1. BEZAFIBRATE [Concomitant]
     Active Substance: BEZAFIBRATE
     Dosage: 1 DF, QD
     Dates: start: 20150330
  2. INDOMETACIN [Concomitant]
     Active Substance: INDOMETHACIN
     Dosage: 1 DF, TID
     Dates: start: 20160503, end: 20160531
  3. SIMVASTATIN. [Suspect]
     Active Substance: SIMVASTATIN
     Dosage: UNK
     Dates: start: 20150330

REACTIONS (1)
  - Tendonitis [Recovered/Resolved]

NARRATIVE: CASE EVENT DATE: 20160715
